FAERS Safety Report 18340890 (Version 15)
Quarter: 2023Q1

REPORT INFORMATION
  Report Type: Report from Study
  Country: US (occurrence: US)
  Receive Date: 20201003
  Receipt Date: 20230106
  Transmission Date: 20230417
  Serious: Yes (Hospitalization, Other)
  Sender: FDA-Public Use
  Company Number: US-SHIRE-US202032146

PATIENT
  Age: 73 Year
  Sex: Female
  Weight: 107 kg

DRUGS (29)
  1. HUMAN IMMUNOGLOBULIN G [Suspect]
     Active Substance: HUMAN IMMUNOGLOBULIN G
     Indication: Asthma
     Dosage: 50 GRAM, Q3WEEKS
     Route: 042
     Dates: start: 20130506
  2. HUMAN IMMUNOGLOBULIN G [Suspect]
     Active Substance: HUMAN IMMUNOGLOBULIN G
     Indication: Immunodeficiency common variable
  3. DIPHENHYDRAMINE [Concomitant]
     Active Substance: DIPHENHYDRAMINE
     Indication: Product used for unknown indication
  4. ALBUTEROL [Concomitant]
     Active Substance: ALBUTEROL
     Indication: Product used for unknown indication
  5. ATORVASTATIN [Concomitant]
     Active Substance: ATORVASTATIN
     Indication: Product used for unknown indication
  6. EPINEPHRINE [Concomitant]
     Active Substance: EPINEPHRINE
     Indication: Product used for unknown indication
  7. SODIUM CHLORIDE [Concomitant]
     Active Substance: SODIUM CHLORIDE
     Indication: Product used for unknown indication
  8. WIXELA INHUB [Concomitant]
     Active Substance: FLUTICASONE PROPIONATE\SALMETEROL XINAFOATE
     Indication: Product used for unknown indication
  9. FLUTICASONE [Concomitant]
     Active Substance: FLUTICASONE
     Indication: Product used for unknown indication
  10. LEVOTHYROXINE [Concomitant]
     Active Substance: LEVOTHYROXINE
     Indication: Product used for unknown indication
  11. PREDNISONE [Concomitant]
     Active Substance: PREDNISONE
     Indication: Product used for unknown indication
  12. MYRBETRIQ [Concomitant]
     Active Substance: MIRABEGRON
     Indication: Product used for unknown indication
  13. OMEPRAZOLE [Concomitant]
     Active Substance: OMEPRAZOLE
     Indication: Product used for unknown indication
  14. CLARITIN-D NOS [Concomitant]
     Active Substance: LORATADINE\PSEUDOEPHEDRINE SULFATE
     Indication: Product used for unknown indication
  15. ASPIRIN [Concomitant]
     Active Substance: ASPIRIN
     Indication: Product used for unknown indication
  16. PROAIR HFA [Concomitant]
     Active Substance: ALBUTEROL SULFATE
     Indication: Product used for unknown indication
  17. VITAMIN C [Concomitant]
     Active Substance: ASCORBIC ACID
     Indication: Product used for unknown indication
  18. VITAMIN D3 [Concomitant]
     Active Substance: CHOLECALCIFEROL
     Indication: Product used for unknown indication
  19. ENALAPRIL MALEATE [Concomitant]
     Active Substance: ENALAPRIL MALEATE
     Indication: Product used for unknown indication
  20. DICLOFENAC [Concomitant]
     Active Substance: DICLOFENAC
     Indication: Product used for unknown indication
  21. SOLIFENACIN [Concomitant]
     Active Substance: SOLIFENACIN
     Indication: Product used for unknown indication
  22. TYLENOL EXTRA STRENGTH [Concomitant]
     Active Substance: ACETAMINOPHEN
     Indication: Product used for unknown indication
  23. MOMETASONE FUROATE [Concomitant]
     Active Substance: MOMETASONE FUROATE
     Indication: Product used for unknown indication
  24. ADVAIR HFA [Concomitant]
     Active Substance: FLUTICASONE PROPIONATE\SALMETEROL XINAFOATE
     Indication: Product used for unknown indication
  25. ACETAMINOPHEN\HYDROCODONE [Concomitant]
     Active Substance: ACETAMINOPHEN\HYDROCODONE
  26. CIPROFLOXACIN [Concomitant]
     Active Substance: CIPROFLOXACIN
  27. NUCALA [Concomitant]
     Active Substance: MEPOLIZUMAB
  28. NAPROXEN [Concomitant]
     Active Substance: NAPROXEN
  29. ALBUTEROL SULFATE [Concomitant]
     Active Substance: ALBUTEROL SULFATE

REACTIONS (20)
  - Pneumonia [Unknown]
  - Asthma [Unknown]
  - Sinus disorder [Unknown]
  - Bladder disorder [Unknown]
  - Muscle strain [Unknown]
  - Sinusitis [Recovering/Resolving]
  - Ear infection [Unknown]
  - Dysphonia [Unknown]
  - Seasonal allergy [Unknown]
  - Weight increased [Unknown]
  - Body height decreased [Unknown]
  - Infusion related reaction [Unknown]
  - Lung disorder [Unknown]
  - Back injury [Unknown]
  - Muscle discomfort [Unknown]
  - Infusion site erythema [Unknown]
  - Fatigue [Unknown]
  - Infusion site pain [Unknown]
  - Back pain [Unknown]
  - Product dose omission issue [Unknown]

NARRATIVE: CASE EVENT DATE: 20220308
